FAERS Safety Report 8924651 (Version 1)
Quarter: 2012Q4

REPORT INFORMATION
  Report Type: 
  Country: US (occurrence: US)
  Receive Date: 20121126
  Receipt Date: 20121126
  Transmission Date: 20130627
  Serious: No
  Sender: FDA-Public Use
  Company Number: US-BRISTOL-MYERS SQUIBB COMPANY-17014580

PATIENT
  Age: 35 Year
  Sex: Female

DRUGS (3)
  1. KOMBIGLYZE XR [Suspect]
     Indication: BLOOD GLUCOSE
  2. LEVOTHYROXINE [Concomitant]
  3. LANTUS [Concomitant]

REACTIONS (3)
  - Abdominal pain upper [Unknown]
  - Vomiting [Unknown]
  - Nausea [Unknown]
